FAERS Safety Report 5833289-2 (Version None)
Quarter: 2008Q3

REPORT INFORMATION
  Report Type: 
  Country: None (occurrence: None)
  Receive Date: 20080804
  Receipt Date: 20080804
  Transmission Date: 20090109
  Serious: Yes (Disabling)
  Sender: FDA-Public Use
  Company Number: None

PATIENT
  Sex: Male
  Weight: 122.4712 kg

DRUGS (2)
  1. SEROQUEL [Suspect]
     Indication: INSOMNIA
     Dosage: 100 MG 2 TIME DAY
     Dates: start: 20031219, end: 20080701
  2. ZYPREXA [Suspect]
     Dosage: 15 MG 1 TIME DAY

REACTIONS (7)
  - DRUG INEFFECTIVE [None]
  - DYSTONIA [None]
  - GAIT DISTURBANCE [None]
  - MUSCLE SPASMS [None]
  - MYALGIA [None]
  - SPEECH DISORDER [None]
  - TARDIVE DYSKINESIA [None]
